FAERS Safety Report 13134866 (Version 14)
Quarter: 2023Q2

REPORT INFORMATION
  Report Type: Spontaneous
  Country: FR (occurrence: FR)
  Receive Date: 20170120
  Receipt Date: 20230609
  Transmission Date: 20230721
  Serious: Yes (Hospitalization, Disabling, Other)
  Sender: FDA-Public Use
  Company Number: MASTERPMICSR-EVHUMAN_10000136646

PATIENT
  Age: 60 Year
  Sex: Female
  Weight: 73 kg

DRUGS (23)
  1. RIFAMPIN [Suspect]
     Active Substance: RIFAMPIN
     Indication: Antibiotic prophylaxis
     Dosage: 600 MG, BID
     Route: 048
     Dates: start: 20160112, end: 20160113
  2. RIFAMPIN [Suspect]
     Active Substance: RIFAMPIN
     Dosage: 600 MG, BID
     Route: 048
     Dates: start: 20160114, end: 20160115
  3. RIFAMPIN [Suspect]
     Active Substance: RIFAMPIN
     Dosage: 600 MG, BID
     Route: 048
     Dates: start: 20160124, end: 20160125
  4. MENVEO [Suspect]
     Active Substance: NEISSERIA MENINGITIDIS GROUP A CAPSULAR OLIGOSACCHARIDE DIPHTHERIA CRM197 PROTEIN CONJUGATE ANTIGEN\
     Indication: Prophylaxis
     Dosage: 1 DF,1X
     Route: 030
     Dates: start: 20160115, end: 20160115
  5. LEVOTHYROXINE [Concomitant]
     Active Substance: LEVOTHYROXINE
     Dosage: 1 DF,QD
     Route: 065
  6. LEVOTHYROXINE [Concomitant]
     Active Substance: LEVOTHYROXINE
     Dosage: 0.5 DF, QD
     Route: 065
  7. PERFALGAN [Concomitant]
     Active Substance: ACETAMINOPHEN
     Dosage: UNK
     Route: 065
     Dates: end: 20160205
  8. PERFALGAN [Concomitant]
     Active Substance: ACETAMINOPHEN
     Dosage: UNK
     Route: 065
     Dates: start: 20160206, end: 20160212
  9. ACETAMINOPHEN [Concomitant]
     Active Substance: ACETAMINOPHEN
     Dosage: UNK
     Route: 065
  10. CEFTRIAXONE [Concomitant]
     Active Substance: CEFTRIAXONE
     Dosage: UNK
     Route: 065
     Dates: start: 20160129, end: 20160205
  11. EUPANTOL [Concomitant]
     Active Substance: PANTOPRAZOLE SODIUM
     Dosage: 40 MG,PRN
     Route: 065
  12. TRAMADOL HYDROCHLORIDE [Concomitant]
     Active Substance: TRAMADOL HYDROCHLORIDE
     Dosage: UNK
     Route: 042
  13. TRIMEBUTINE [Concomitant]
     Active Substance: TRIMEBUTINE
     Dosage: UNK
  14. METRONIDAZOLE [Concomitant]
     Active Substance: METRONIDAZOLE
     Dosage: UNK
     Route: 042
     Dates: start: 20160130, end: 20160202
  15. METRONIDAZOLE [Concomitant]
     Active Substance: METRONIDAZOLE
     Dosage: 3 DF, QD
     Route: 065
     Dates: start: 20160203, end: 20160205
  16. METRONIDAZOLE [Concomitant]
     Active Substance: METRONIDAZOLE
     Dosage: UNK UNK, TID
     Route: 042
     Dates: start: 20160206, end: 20160212
  17. ACUPAN [Concomitant]
     Active Substance: NEFOPAM HYDROCHLORIDE
     Dosage: UNK
     Dates: start: 20160129, end: 20160317
  18. FIDAXOMICIN [Concomitant]
     Active Substance: FIDAXOMICIN
     Dosage: UNK
  19. CEFTRIAXONE SODIUM [Concomitant]
     Active Substance: CEFTRIAXONE SODIUM
     Dosage: 1 G, BID
     Route: 042
     Dates: start: 20160130, end: 20160202
  20. CEFTRIAXONE SODIUM [Concomitant]
     Active Substance: CEFTRIAXONE SODIUM
     Dosage: 1 G, UNK
     Route: 030
  21. CEFTRIAXONE SODIUM [Concomitant]
     Active Substance: CEFTRIAXONE SODIUM
     Dosage: 1 G
     Route: 042
     Dates: start: 20160206, end: 20160212
  22. PHLOROGLUCINOL [Concomitant]
     Active Substance: PHLOROGLUCINOL
     Dosage: UNK
  23. OFLOXACIN [Concomitant]
     Active Substance: OFLOXACIN
     Dosage: 1 G,UNK
     Route: 065
     Dates: start: 20160221

REACTIONS (30)
  - Large intestine perforation [Recovered/Resolved with Sequelae]
  - Peritonitis [Recovered/Resolved with Sequelae]
  - Retinal detachment [Recovered/Resolved with Sequelae]
  - Motor dysfunction [Not Recovered/Not Resolved]
  - Vomiting [Recovered/Resolved]
  - Visual impairment [Not Recovered/Not Resolved]
  - Respiratory disorder [Unknown]
  - Abnormal faeces [Not Recovered/Not Resolved]
  - Back pain [Not Recovered/Not Resolved]
  - Total lung capacity decreased [Not Recovered/Not Resolved]
  - Hyperhidrosis [Unknown]
  - Nervous system disorder [Not Recovered/Not Resolved]
  - Haemodynamic instability [Unknown]
  - Mobility decreased [Not Recovered/Not Resolved]
  - Periarthritis [Unknown]
  - Hypoaesthesia [Unknown]
  - Musculoskeletal disorder [Not Recovered/Not Resolved]
  - Pain in extremity [Unknown]
  - Depression [Not Recovered/Not Resolved]
  - Tachycardia [Unknown]
  - Flatulence [Not Recovered/Not Resolved]
  - Blood pressure immeasurable [Unknown]
  - Intellectual disability [Not Recovered/Not Resolved]
  - Insomnia [Not Recovered/Not Resolved]
  - Asthenia [Not Recovered/Not Resolved]
  - Colitis [Recovered/Resolved with Sequelae]
  - Abdominal pain upper [Unknown]
  - Abdominal pain [Recovered/Resolved]
  - Fatigue [Not Recovered/Not Resolved]
  - Clostridium difficile colitis [Recovered/Resolved]

NARRATIVE: CASE EVENT DATE: 20160101
